FAERS Safety Report 8261343-7 (Version None)
Quarter: 2012Q2

REPORT INFORMATION
  Report Type: 
  Country: None (occurrence: None)
  Receive Date: 20120405
  Receipt Date: 20120327
  Transmission Date: 20120825
  Serious: Yes (Hospitalization)
  Sender: FDA-Public Use
  Company Number: US-BAYER-2011-034746

PATIENT
  Age: 22 Year
  Sex: Female
  Weight: 54 kg

DRUGS (23)
  1. AZITHROMYCIN [Concomitant]
     Dosage: UNK
     Dates: start: 20030101, end: 20100101
  2. SULFAMETHOXAZOLE + TRIMETHOPRIM [Concomitant]
     Dosage: UNK
     Dates: start: 20030101, end: 20100101
  3. CEPHALEXIN [Concomitant]
     Dosage: UNK
     Dates: start: 20030101, end: 20100101
  4. YASMIN [Suspect]
     Indication: PREMENSTRUAL SYNDROME
  5. YAZ [Suspect]
     Indication: PREMENSTRUAL SYNDROME
  6. NITROFURANTOIN [Concomitant]
     Dosage: UNK
     Dates: start: 20030101, end: 20100101
  7. CIPROFLOXACIN HCL [Concomitant]
     Dosage: UNK
     Dates: start: 20030101, end: 20100101
  8. CLINDAMYCIN [Concomitant]
     Dosage: UNK
     Dates: start: 20030101, end: 20100101
  9. NOROXIN [Concomitant]
     Dosage: UNK
     Dates: start: 20030101, end: 20100101
  10. PENICILLIN [Concomitant]
     Dosage: UNK
     Dates: start: 20030101, end: 20100101
  11. PREDNISONE TAB [Concomitant]
     Dosage: 20 MG, UNK
     Dates: start: 20070326
  12. ADIPEX [Concomitant]
     Dosage: DAILY
     Route: 048
     Dates: start: 20070529
  13. LEXAPRO [Concomitant]
     Indication: DEPRESSION
     Dosage: UNK
     Dates: start: 20070101, end: 20080101
  14. AMOXICILLIN AND CLAVULANATE POTASSIUM [Concomitant]
     Dosage: UNK
     Dates: start: 20030101, end: 20100101
  15. TYLENOL [Concomitant]
  16. TAMIFLU [Concomitant]
     Dosage: UNK
     Dates: start: 20070529
  17. YAZ [Suspect]
     Indication: CONTRACEPTION
     Dosage: UNK
     Dates: start: 20060901, end: 20070601
  18. SULFAMETHOXAZOLE AND TRIMETHOPRIM [Concomitant]
     Dosage: UNK
     Dates: start: 20030101, end: 20100101
  19. YASMIN [Suspect]
     Indication: CONTRACEPTION
     Dosage: UNK
     Dates: start: 20030101, end: 20060101
  20. LEVAQUIN [Concomitant]
     Dosage: UNK
     Dates: start: 20030101, end: 20100101
  21. NIRAVAM [Concomitant]
     Dosage: 0.25 MG EVERY 8 HOURS AS AS NEEDED
     Route: 048
     Dates: start: 20070623
  22. WARFARIN SODIUM [Concomitant]
  23. ALBUTEROL [Concomitant]
     Dosage: 0.09 MG, UNK
     Dates: start: 20070326

REACTIONS (8)
  - ATTENTION DEFICIT/HYPERACTIVITY DISORDER [None]
  - PAIN [None]
  - DEPRESSION [None]
  - PULMONARY EMBOLISM [None]
  - EMOTIONAL DISTRESS [None]
  - PANIC DISORDER [None]
  - ANXIETY [None]
  - DYSPNOEA [None]
